FAERS Safety Report 4537269-9 (Version None)
Quarter: 2004Q4

REPORT INFORMATION
  Report Type: 
  Country: None (occurrence: None)
  Receive Date: 20041223
  Receipt Date: 20041217
  Transmission Date: 20050328
  Serious: Yes (Other)
  Sender: FDA-Public Use
  Company Number: PHNU2004DE04239

PATIENT
  Sex: Female

DRUGS (1)
  1. LAMISIL [Suspect]
     Indication: TINEA CAPITIS
     Dosage: 62.5 MG/D
     Dates: start: 20031101

REACTIONS (6)
  - LEUKOCYTOSIS [None]
  - MEAN CELL VOLUME DECREASED [None]
  - MICROCYTIC ANAEMIA [None]
  - THROMBOCYTHAEMIA [None]
  - TINEA CAPITIS [None]
  - TREATMENT NONCOMPLIANCE [None]
